FAERS Safety Report 12204103 (Version 1)
Quarter: 2016Q1

REPORT INFORMATION
  Report Type: Spontaneous
  Country: US (occurrence: None)
  Receive Date: 20160322
  Receipt Date: 20160322
  Transmission Date: 20160526
  Serious: Yes (Death, Other)
  Sender: FDA-Public Use
  Company Number: None

PATIENT
  Age: 30 Year
  Sex: Female
  Weight: 36 kg

DRUGS (1)
  1. GADAVIST [Suspect]
     Active Substance: GADOBUTROL
     Indication: SEIZURE
     Dosage: 10 CC
     Route: 042
     Dates: start: 20160202

REACTIONS (1)
  - Vomiting [None]

NARRATIVE: CASE EVENT DATE: 20160202
